FAERS Safety Report 13765858 (Version 1)
Quarter: 2017Q3

REPORT INFORMATION
  Report Type: Spontaneous
  Country: US (occurrence: US)
  Receive Date: 20170718
  Receipt Date: 20170718
  Transmission Date: 20171127
  Serious: Yes (Life-Threatening, Disabling)
  Sender: FDA-Public Use
  Company Number: None

PATIENT
  Sex: Female
  Weight: 81.19 kg

DRUGS (22)
  1. CODEINE SULFATE TABLETS 30 MG [Suspect]
     Active Substance: CODEINE SULFATE
     Indication: VASOSPASM
     Dosage: FREQUENCY - PRESCRIPTION WAS VARIED IN YEARS.
     Route: 048
  2. SUDAFED [Concomitant]
     Active Substance: PSEUDOEPHEDRINE HYDROCHLORIDE
  3. SUPHEDRINE [Concomitant]
     Active Substance: PSEUDOEPHEDRINE HYDROCHLORIDE
  4. CODEINE SULFATE TABLETS 30 MG [Suspect]
     Active Substance: CODEINE SULFATE
     Indication: OSTEOARTHRITIS
     Dosage: FREQUENCY - PRESCRIPTION WAS VARIED IN YEARS.
     Route: 048
  5. CODEINE SULFATE TABLETS 30 MG [Suspect]
     Active Substance: CODEINE SULFATE
     Indication: PAIN
     Dosage: FREQUENCY - PRESCRIPTION WAS VARIED IN YEARS.
     Route: 048
  6. ZANTAC [Concomitant]
     Active Substance: RANITIDINE HYDROCHLORIDE
  7. OXAZEPAM. [Concomitant]
     Active Substance: OXAZEPAM
  8. AMLODIPINE [Concomitant]
     Active Substance: AMLODIPINE BESYLATE
  9. AMLODIPINE BISULFATE [Concomitant]
  10. CODEINE SULFATE TABLETS 30 MG [Suspect]
     Active Substance: CODEINE SULFATE
     Indication: RHEUMATOID ARTHRITIS
     Dosage: FREQUENCY - PRESCRIPTION WAS VARIED IN YEARS.
     Route: 048
  11. IBUPROFEN. [Concomitant]
     Active Substance: IBUPROFEN
  12. MUPIROCIN. [Concomitant]
     Active Substance: MUPIROCIN
  13. VOLTAREN [Concomitant]
     Active Substance: DICLOFENAC SODIUM
  14. HCTZ [Concomitant]
     Active Substance: HYDROCHLOROTHIAZIDE
  15. CODEINE [Concomitant]
     Active Substance: CODEINE
  16. D-3 [Concomitant]
     Active Substance: CHOLECALCIFEROL
  17. XOPENEX [Concomitant]
     Active Substance: LEVALBUTEROL HYDROCHLORIDE
  18. HOMEOPATIC MEDICATIONS [Concomitant]
  19. CODEINE SULFATE TABLETS 30 MG [Suspect]
     Active Substance: CODEINE SULFATE
     Indication: FIBROMYALGIA
     Dosage: FREQUENCY - PRESCRIPTION WAS VARIED IN YEARS.
     Route: 048
  20. DIPYRIDAMOLE. [Concomitant]
     Active Substance: DIPYRIDAMOLE
  21. ENZYMES [Concomitant]
  22. VITAMIN B12 [Concomitant]
     Active Substance: CYANOCOBALAMIN

REACTIONS (4)
  - Pain [None]
  - Blood pressure increased [None]
  - Fear of disease [None]
  - Product quality issue [None]
